FAERS Safety Report 10020564 (Version 2)
Quarter: 2014Q2

REPORT INFORMATION
  Report Type: Spontaneous
  Country: BE (occurrence: BE)
  Receive Date: 20140319
  Receipt Date: 20140409
  Transmission Date: 20141212
  Serious: Yes (Death, Hospitalization)
  Sender: FDA-Public Use
  Company Number: BE-ROCHE-1367108

PATIENT
  Age: 35 Year
  Sex: Male

DRUGS (3)
  1. XOLAIR [Suspect]
     Indication: ASTHMA
     Route: 065
  2. SYMBICORT [Concomitant]
  3. MEDROL [Concomitant]

REACTIONS (9)
  - Sudden cardiac death [Fatal]
  - Cardiac arrest [Fatal]
  - Myocardial infarction [Recovered/Resolved]
  - Lung disorder [Recovered/Resolved]
  - Acute myocardial infarction [Recovered/Resolved]
  - Aortic arteriosclerosis [Unknown]
  - Aortic valve incompetence [Unknown]
  - Arteriospasm coronary [Unknown]
  - Tricuspid valve incompetence [Unknown]
